FAERS Safety Report 22615825 (Version 2)
Quarter: 2023Q2

REPORT INFORMATION
  Report Type: Spontaneous
  Country: US (occurrence: US)
  Receive Date: 20230619
  Receipt Date: 20230626
  Transmission Date: 20230721
  Serious: No
  Sender: FDA-Public Use
  Company Number: US-BRISTOL-MYERS SQUIBB COMPANY-2023-085917

PATIENT
  Age: 59 Year
  Sex: Female

DRUGS (1)
  1. SPRYCEL [Suspect]
     Active Substance: DASATINIB
     Indication: Chronic myeloid leukaemia
     Route: 048
     Dates: start: 202305, end: 20230616

REACTIONS (6)
  - Swelling face [Unknown]
  - Pyrexia [Unknown]
  - Flushing [Unknown]
  - Blister [Unknown]
  - Herpes simplex [Unknown]
  - Herpes zoster [Unknown]
